FAERS Safety Report 10028252 (Version 1)
Quarter: 2014Q1

REPORT INFORMATION
  Report Type: Spontaneous
  Country: US (occurrence: US)
  Receive Date: 20140321
  Receipt Date: 20140321
  Transmission Date: 20141002
  Serious: Yes (Death)
  Sender: FDA-Public Use
  Company Number: US-SA-2014SA031806

PATIENT
  Sex: Male

DRUGS (1)
  1. PLAVIX [Suspect]
     Indication: PRODUCT USED FOR UNKNOWN INDICATION
     Route: 048
     Dates: start: 20050906, end: 20111213

REACTIONS (4)
  - Injury [Fatal]
  - Gastrointestinal haemorrhage [Fatal]
  - Ulcer [Fatal]
  - Haemorrhage [Fatal]
